FAERS Safety Report 12766915 (Version 1)
Quarter: 2016Q3

REPORT INFORMATION
  Report Type: Spontaneous
  Country: US (occurrence: US)
  Receive Date: 20160915
  Receipt Date: 20160915
  Transmission Date: 20161109
  Serious: No
  Sender: FDA-Public Use
  Company Number: None

PATIENT
  Sex: Female

DRUGS (1)
  1. FORTEO [Suspect]
     Active Substance: TERIPARATIDE
     Indication: PRODUCT USED FOR UNKNOWN INDICATION
     Dosage: FORTEO 20MCG - SUBCUTANEOUSLY - DAILY
     Route: 058
     Dates: start: 20160517, end: 20160713

REACTIONS (4)
  - Dizziness [None]
  - Fatigue [None]
  - Headache [None]
  - Therapy cessation [None]
